FAERS Safety Report 9819145 (Version 1)
Quarter: 2014Q1

REPORT INFORMATION
  Report Type: Spontaneous
  Country: US (occurrence: US)
  Receive Date: 20140115
  Receipt Date: 20140115
  Transmission Date: 20141002
  Serious: No
  Sender: FDA-Public Use
  Company Number: US-ENDO PHARMACEUTICALS INC.-PERC20130128

PATIENT
  Sex: Female
  Weight: 63.56 kg

DRUGS (4)
  1. PERCOCET [Suspect]
     Indication: PRODUCT USED FOR UNKNOWN INDICATION
     Dosage: UNKNOWN
     Route: 048
  2. CALAN SR [Concomitant]
     Indication: HYPERTENSION
     Route: 048
     Dates: start: 2003
  3. VICODIN [Concomitant]
     Indication: PAIN
     Dosage: UNKNOWN
     Route: 048
  4. MOTRIN [Concomitant]
     Indication: PRODUCT USED FOR UNKNOWN INDICATION
     Dosage: UNKNOWN
     Route: 048

REACTIONS (1)
  - Drug hypersensitivity [Unknown]
